FAERS Safety Report 5349405-5 (Version None)
Quarter: 2007Q2

REPORT INFORMATION
  Report Type: 
  Country: None (occurrence: None)
  Receive Date: 20070504
  Receipt Date: 20060821
  Transmission Date: 20071010
  Serious: Yes (Other)
  Sender: FDA-Public Use
  Company Number: PHEH2006US06066

PATIENT
  Age: 34 Year
  Sex: Male
  Weight: 80.3 kg

DRUGS (3)
  1. DIOVAN HCT [Suspect]
     Indication: HYPERTENSION
     Dosage: SEE IMAGE
     Dates: start: 20040806, end: 20040907
  2. DIOVAN HCT [Suspect]
     Indication: HYPERTENSION
     Dosage: SEE IMAGE
     Dates: start: 20040908, end: 20060508
  3. VITAMIN B COMPLEX (CALCIUM PANTOTHENATE, NICOTINAMIDE, PYRIDOXINE HYDR [Concomitant]

REACTIONS (12)
  - ABDOMINAL PAIN [None]
  - ALANINE AMINOTRANSFERASE INCREASED [None]
  - ASPARTATE AMINOTRANSFERASE INCREASED [None]
  - ASTHENIA [None]
  - BLOOD PRESSURE INADEQUATELY CONTROLLED [None]
  - DECREASED APPETITE [None]
  - DIZZINESS [None]
  - HYPERHIDROSIS [None]
  - INFECTIOUS MONONUCLEOSIS [None]
  - NAUSEA [None]
  - PALLOR [None]
  - UROBILIN URINE PRESENT [None]
